FAERS Safety Report 8860730 (Version 1)
Quarter: 2012Q4

REPORT INFORMATION
  Report Type: 
  Country: US (occurrence: US)
  Receive Date: 20121025
  Receipt Date: 20121025
  Transmission Date: 20130627
  Serious: No
  Sender: FDA-Public Use
  Company Number: US-ASTRAZENECA-2012SE79196

PATIENT
  Sex: Male

DRUGS (3)
  1. PRILOSEC [Suspect]
     Route: 048
  2. NEXIUM [Concomitant]
  3. ZANTAC [Concomitant]

REACTIONS (4)
  - Gastrooesophageal reflux disease [Unknown]
  - Throat lesion [Unknown]
  - Sleep disorder due to general medical condition, insomnia type [Unknown]
  - Drug ineffective [Unknown]
